FAERS Safety Report 4366583-5 (Version None)
Quarter: 2004Q2

REPORT INFORMATION
  Report Type: 
  Country: None (occurrence: None)
  Receive Date: 20040527
  Receipt Date: 20040513
  Transmission Date: 20050107
  Serious: Yes (Other)
  Sender: FDA-Public Use
  Company Number: US-GLAXOSMITHKLINE-A0512188A

PATIENT
  Sex: Male

DRUGS (2)
  1. DEXEDRINE [Suspect]
     Indication: DRUG USE FOR UNKNOWN INDICATION
     Route: 048
     Dates: start: 19950101, end: 20000101
  2. DEXEDRINE [Suspect]
     Route: 048
     Dates: start: 19950101, end: 20000101

REACTIONS (1)
  - HAIRY CELL LEUKAEMIA [None]
